FAERS Safety Report 21210269 (Version 6)
Quarter: 2023Q1

REPORT INFORMATION
  Report Type: Report from Study
  Country: US (occurrence: US)
  Receive Date: 20220814
  Receipt Date: 20230207
  Transmission Date: 20230418
  Serious: Yes (Other)
  Sender: FDA-Public Use
  Company Number: US-ABBVIE-22K-163-4502461-00

PATIENT
  Age: 37 Year
  Sex: Male

DRUGS (4)
  1. SKYRIZI [Suspect]
     Active Substance: RISANKIZUMAB-RZAA
     Indication: Psoriasis
     Dosage: WEEK 0
     Route: 058
     Dates: start: 20220710, end: 20220710
  2. SKYRIZI [Suspect]
     Active Substance: RISANKIZUMAB-RZAA
     Indication: Psoriatic arthropathy
     Dosage: WEEK 4
     Route: 058
     Dates: start: 20220806
  3. SKYRIZI [Suspect]
     Active Substance: RISANKIZUMAB-RZAA
     Indication: Psoriasis
  4. MODERNA COVID-19 VACCINE [Concomitant]
     Active Substance: ELASOMERAN
     Indication: COVID-19 immunisation
     Dosage: 1 IN ONCE
     Route: 030

REACTIONS (14)
  - Gastrointestinal haemorrhage [Not Recovered/Not Resolved]
  - Blood cholesterol increased [Unknown]
  - Sinusitis [Recovered/Resolved]
  - Back pain [Unknown]
  - Ear infection [Recovered/Resolved]
  - Psoriasis [Unknown]
  - Nerve compression [Recovered/Resolved]
  - Neck pain [Unknown]
  - Papule [Unknown]
  - Gastrointestinal disorder [Recovering/Resolving]
  - Electric shock sensation [Not Recovered/Not Resolved]
  - Nerve compression [Not Recovered/Not Resolved]
  - Mobility decreased [Unknown]
  - Musculoskeletal disorder [Unknown]

NARRATIVE: CASE EVENT DATE: 20220801
